FAERS Safety Report 25114505 (Version 1)
Quarter: 2025Q1

REPORT INFORMATION
  Report Type: Spontaneous
  Country: AU (occurrence: AU)
  Receive Date: 20250324
  Receipt Date: 20250324
  Transmission Date: 20250409
  Serious: Yes (Other)
  Sender: MYLAN
  Company Number: AU-MYLANLABS-2024M1098083

PATIENT
  Age: 18 Year
  Sex: Male
  Weight: 60 kg

DRUGS (2)
  1. CLOZARIL [Suspect]
     Active Substance: CLOZAPINE
     Indication: Schizophrenia
     Dates: start: 20241005, end: 20241024
  2. CLOZARIL [Suspect]
     Active Substance: CLOZAPINE

REACTIONS (20)
  - Tricuspid valve incompetence [Unknown]
  - Myocarditis [Unknown]
  - Red blood cell sedimentation rate increased [Unknown]
  - Anion gap decreased [Recovered/Resolved]
  - Blood uric acid increased [Recovered/Resolved]
  - Blood albumin decreased [Recovered/Resolved]
  - Blood calcium increased [Unknown]
  - Adjusted calcium increased [Unknown]
  - Blood magnesium increased [Recovered/Resolved]
  - C-reactive protein increased [Recovered/Resolved]
  - Blood osmolarity increased [Not Recovered/Not Resolved]
  - Troponin C increased [Recovered/Resolved]
  - Bilirubin conjugated increased [Unknown]
  - Red blood cell count decreased [Recovered/Resolved]
  - Haematocrit decreased [Recovered/Resolved]
  - Haemoglobin decreased [Not Recovered/Not Resolved]
  - Eosinophil count increased [Recovered/Resolved]
  - Neutrophil count decreased [Unknown]
  - Chest pain [Unknown]
  - Blood glucose increased [Recovered/Resolved]

NARRATIVE: CASE EVENT DATE: 20241001
